FAERS Safety Report 18406300 (Version 1)
Quarter: 2020Q4

REPORT INFORMATION
  Report Type: Spontaneous
  Country: US (occurrence: US)
  Receive Date: 20201020
  Receipt Date: 20201020
  Transmission Date: 20210114
  Serious: Yes (Other)
  Sender: FDA-Public Use
  Company Number: US-PURDUE-USA-2020-0171693

PATIENT
  Sex: Male

DRUGS (10)
  1. HYDROMORPHONE HCL ORAL SOLUTION [Suspect]
     Active Substance: HYDROMORPHONE HYDROCHLORIDE
     Indication: ORTHOPAEDIC PROCEDURE
     Dosage: UNK
     Dates: start: 2007
  2. TRAMADOL. [Suspect]
     Active Substance: TRAMADOL
     Indication: ORTHOPAEDIC PROCEDURE
     Dosage: UNK
     Dates: start: 2007
  3. DILAUDID [Suspect]
     Active Substance: HYDROMORPHONE HYDROCHLORIDE
     Indication: ORTHOPAEDIC PROCEDURE
     Dosage: UNK
     Dates: start: 2007
  4. OXYCODONE/ ACETAMINOPHEN TABLETS [Suspect]
     Active Substance: ACETAMINOPHEN\OXYCODONE HYDROCHLORIDE
     Indication: ORTHOPAEDIC PROCEDURE
     Dosage: UNK
     Dates: start: 2007
  5. BUTRANS [Suspect]
     Active Substance: BUPRENORPHINE
     Indication: ORTHOPAEDIC PROCEDURE
     Dosage: UNK
     Dates: start: 2007
  6. MS CONTIN [Suspect]
     Active Substance: MORPHINE SULFATE
     Dosage: UNK
     Dates: start: 2007
  7. HYDROCODONE BITARTRATE AND ACETAMINOPHEN [Suspect]
     Active Substance: ACETAMINOPHEN\HYDROCODONE BITARTRATE
     Indication: ORTHOPAEDIC PROCEDURE
     Dosage: UNK
     Dates: start: 2007
  8. HYDROMORPHONE HYDROCHLORIDE IMMEDIATE-RELEASE (SIMILAR TO IND 38,424) [Suspect]
     Active Substance: HYDROMORPHONE HYDROCHLORIDE
     Indication: ORTHOPAEDIC PROCEDURE
     Dosage: UNK
     Dates: start: 2007
  9. OXYCONTIN [Suspect]
     Active Substance: OXYCODONE HYDROCHLORIDE
     Indication: ORTHOPAEDIC PROCEDURE
     Dosage: UNK
     Route: 048
     Dates: start: 2007
  10. OXYCODONE HYDROCHLORIDE. [Suspect]
     Active Substance: OXYCODONE HYDROCHLORIDE
     Indication: ORTHOPAEDIC PROCEDURE
     Dosage: UNK
     Dates: start: 2007

REACTIONS (8)
  - Anxiety [Unknown]
  - Memory impairment [Unknown]
  - Dependence [Unknown]
  - Withdrawal syndrome [Unknown]
  - Depression [Unknown]
  - Hyperaesthesia [Unknown]
  - Loss of libido [Unknown]
  - Mast cell activation syndrome [Unknown]

NARRATIVE: CASE EVENT DATE: 2009
